FAERS Safety Report 9368013 (Version 1)
Quarter: 2013Q2

REPORT INFORMATION
  Report Type: Spontaneous
  Country: US (occurrence: US)
  Receive Date: 20130625
  Receipt Date: 20130625
  Transmission Date: 20140414
  Serious: Yes (Other)
  Sender: FDA-Public Use
  Company Number: US-ASTELLAS-2012US011185

PATIENT
  Sex: Female

DRUGS (3)
  1. VESICARE [Suspect]
     Indication: HYPERTONIC BLADDER
     Dosage: 10 MG, UID/QD
     Route: 048
     Dates: start: 201209
  2. METOPROLOL [Suspect]
     Indication: BLOOD PRESSURE
     Dosage: 25 MG, UID/QD
     Route: 048
  3. ANALGESICS [Suspect]
     Indication: PAIN
     Dosage: UNK
     Route: 065

REACTIONS (2)
  - Oedema peripheral [Recovered/Resolved]
  - Hypotension [Recovering/Resolving]
